FAERS Safety Report 14161815 (Version 2)
Quarter: 2017Q4

REPORT INFORMATION
  Report Type: Spontaneous
  Country: US (occurrence: US)
  Receive Date: 20171106
  Receipt Date: 20171215
  Transmission Date: 20180321
  Serious: Yes (Hospitalization, Other)
  Sender: FDA-Public Use
  Company Number: US-PFIZER INC-2017475722

PATIENT
  Age: 88 Year
  Sex: Female

DRUGS (5)
  1. PREMARIN [Suspect]
     Active Substance: ESTROGENS, CONJUGATED
     Indication: ANXIETY
  2. PREMARIN [Suspect]
     Active Substance: ESTROGENS, CONJUGATED
     Indication: HORMONE LEVEL ABNORMAL
  3. PREMARIN [Suspect]
     Active Substance: ESTROGENS, CONJUGATED
     Indication: HYSTERECTOMY
     Dosage: 1.25 MG, 1X/DAY
  4. PREMARIN [Suspect]
     Active Substance: ESTROGENS, CONJUGATED
     Indication: AFFECTIVE DISORDER
  5. PREMARIN [Suspect]
     Active Substance: ESTROGENS, CONJUGATED
     Indication: PAIN

REACTIONS (2)
  - Product use in unapproved indication [Unknown]
  - Colon cancer [Not Recovered/Not Resolved]

NARRATIVE: CASE EVENT DATE: 20171105
